FAERS Safety Report 8199068-9 (Version None)
Quarter: 2012Q1

REPORT INFORMATION
  Report Type: 
  Country: None (occurrence: None)
  Receive Date: 20120309
  Receipt Date: 20120305
  Transmission Date: 20120608
  Serious: Yes (Other)
  Sender: FDA-Public Use
  Company Number: ZA-GLAXOSMITHKLINE-B0786348A

PATIENT
  Sex: Female

DRUGS (1)
  1. ZYBAN [Suspect]
     Indication: EX-TOBACCO USER
     Route: 065

REACTIONS (3)
  - ARRHYTHMIA [None]
  - WOLFF-PARKINSON-WHITE SYNDROME [None]
  - CONDITION AGGRAVATED [None]
